FAERS Safety Report 9992205 (Version 1)
Quarter: 2014Q1

REPORT INFORMATION
  Report Type: Spontaneous
  Country: US (occurrence: None)
  Receive Date: 20140228
  Receipt Date: 20140228
  Transmission Date: 20141002
  Serious: Yes (Hospitalization)
  Sender: FDA-Public Use
  Company Number: UTC-034042

PATIENT
  Age: 32 Year
  Sex: Male
  Weight: 30.5 kg

DRUGS (2)
  1. REMODULIN [Suspect]
     Indication: BRONCHIECTASIS
     Dosage: 46.08UG/KG (0.032UG/KG 1 IN 1MIN) INTRAVENOUS DRIP
     Route: 041
     Dates: start: 20070626
  2. ADCIRCA (TADALAFIL) [Concomitant]

REACTIONS (1)
  - Device related infection [None]
